FAERS Safety Report 9632819 (Version 2)
Quarter: 2017Q3

REPORT INFORMATION
  Report Type: Spontaneous
  Country: US (occurrence: US)
  Receive Date: 20131018
  Receipt Date: 20170804
  Transmission Date: 20171128
  Serious: Yes (Hospitalization, Disabling, Other)
  Sender: FDA-Public Use
  Company Number: US-009507513-1310USA006451

PATIENT
  Sex: Female

DRUGS (2)
  1. FOSAMAX [Suspect]
     Active Substance: ALENDRONATE SODIUM
     Indication: OSTEOPOROSIS
     Dosage: 70 MG, UNK
     Route: 048
     Dates: start: 20040223, end: 20050922
  2. BONIVA [Suspect]
     Active Substance: IBANDRONATE SODIUM
     Indication: OSTEOPOROSIS
     Dosage: 150 MG, UNK
     Route: 048
     Dates: start: 20051016, end: 20100408

REACTIONS (17)
  - Fracture nonunion [Unknown]
  - Femur fracture [Unknown]
  - Pain in extremity [Recovered/Resolved]
  - Multiple fractures [Not Recovered/Not Resolved]
  - Foot fracture [Unknown]
  - Peripheral vascular disorder [Unknown]
  - Haemorrhagic anaemia [Unknown]
  - Femur fracture [Not Recovered/Not Resolved]
  - Gait inability [Unknown]
  - Dental prosthesis placement [Unknown]
  - Depression [Unknown]
  - Impaired work ability [Unknown]
  - Musculoskeletal discomfort [Recovered/Resolved]
  - Low turnover osteopathy [Not Recovered/Not Resolved]
  - Femur fracture [Unknown]
  - Osteoporosis [Not Recovered/Not Resolved]
  - Anxiety [Unknown]

NARRATIVE: CASE EVENT DATE: 2007
